FAERS Safety Report 13860919 (Version 2)
Quarter: 2017Q3

REPORT INFORMATION
  Report Type: Report from Study
  Country: US (occurrence: US)
  Receive Date: 20170811
  Receipt Date: 20170818
  Transmission Date: 20171127
  Serious: Yes (Other)
  Sender: FDA-Public Use
  Company Number: US-JNJFOC-20170803301

PATIENT
  Sex: Female
  Weight: 50.8 kg

DRUGS (4)
  1. PANTOPRAZOLE [Concomitant]
     Active Substance: PANTOPRAZOLE
     Route: 065
  2. LOMOTIL [Concomitant]
     Active Substance: ATROPINE SULFATE\DIPHENOXYLATE HYDROCHLORIDE
     Route: 065
  3. STELARA [Suspect]
     Active Substance: USTEKINUMAB
     Indication: CROHN^S DISEASE
     Route: 042
     Dates: start: 201707
  4. LEVSIN [Concomitant]
     Active Substance: HYOSCYAMINE SULFATE
     Route: 065

REACTIONS (10)
  - Dyspnoea [Unknown]
  - Stress [Unknown]
  - Nasopharyngitis [Unknown]
  - Abdominal pain upper [Unknown]
  - Chest pain [Unknown]
  - Seizure [Unknown]
  - Drug ineffective [Unknown]
  - Diarrhoea [Unknown]
  - Pain [Unknown]
  - Infusion related reaction [Unknown]

NARRATIVE: CASE EVENT DATE: 2017
